FAERS Safety Report 7092497-6 (Version None)
Quarter: 2010Q4

REPORT INFORMATION
  Report Type: 
  Country: None (occurrence: None)
  Receive Date: 20101108
  Receipt Date: 20101108
  Transmission Date: 20110411
  Serious: Yes (Hospitalization)
  Sender: FDA-Public Use
  Company Number: None

PATIENT
  Age: 57 Year
  Sex: Female
  Weight: 48.5349 kg

DRUGS (1)
  1. RECLAST [Suspect]
     Indication: OSTEOPOROSIS
     Dosage: 2.5 IV DRIP
     Route: 041
     Dates: start: 20100929, end: 20100929

REACTIONS (4)
  - DYSPHONIA [None]
  - HYPOAESTHESIA ORAL [None]
  - PRURITUS [None]
  - THERMAL BURN [None]
